FAERS Safety Report 9924322 (Version 2)
Quarter: 2014Q2

REPORT INFORMATION
  Report Type: Spontaneous
  Country: FR (occurrence: FR)
  Receive Date: 20140226
  Receipt Date: 20140404
  Transmission Date: 20141212
  Serious: Yes (Life-Threatening)
  Sender: FDA-Public Use
  Company Number: FR-ROCHE-1354222

PATIENT
  Age: 4 Month
  Sex: Male
  Weight: 6 kg

DRUGS (2)
  1. VALIUM [Suspect]
     Indication: GENERALISED TONIC-CLONIC SEIZURE
     Dosage: 10MG/2ML
     Route: 054
     Dates: start: 20140126, end: 20140126
  2. XYLOCAINE [Suspect]
     Indication: CIRCUMCISION
     Dosage: 2%
     Route: 058
     Dates: start: 20140126, end: 20140126

REACTIONS (3)
  - Respiratory arrest [Recovered/Resolved]
  - Ventricular tachycardia [Recovered/Resolved]
  - Incorrect dose administered [Unknown]
